FAERS Safety Report 5704250-3 (Version None)
Quarter: 2008Q2

REPORT INFORMATION
  Report Type: 
  Country: None (occurrence: None)
  Receive Date: 20080409
  Receipt Date: 20080331
  Transmission Date: 20081010
  Serious: Yes (Hospitalization)
  Sender: FDA-Public Use
  Company Number: 2008-01136

PATIENT
  Age: 56 Year
  Sex: Male
  Weight: 53 kg

DRUGS (5)
  1. VELCADE [Suspect]
     Indication: MULTIPLE MYELOMA
     Dosage: 1.3 MG/M2,
     Dates: start: 20080311, end: 20080325
  2. PIPERACILLIN [Concomitant]
  3. COMBACTAM (SULBACTAM SODIUM) [Concomitant]
  4. ESOMEPRAZOLE (ESOMEPRAZOLE) [Concomitant]
  5. METRONIDAZOLE [Concomitant]

REACTIONS (1)
  - INFECTION [None]
